FAERS Safety Report 10370321 (Version 1)
Quarter: 2014Q3

REPORT INFORMATION
  Report Type: Spontaneous
  Country: CH (occurrence: CH)
  Receive Date: 20140808
  Receipt Date: 20140808
  Transmission Date: 20150326
  Serious: Yes (Hospitalization, Other)
  Sender: FDA-Public Use
  Company Number: CH-ELI_LILLY_AND_COMPANY-CH201407011719

PATIENT
  Age: 20 Year
  Sex: Male

DRUGS (8)
  1. IMOVANE [Concomitant]
     Active Substance: ZOPICLONE
     Dosage: 7.5 MG, UNK
  2. DAFALGAN [Concomitant]
     Active Substance: ACETAMINOPHEN
     Dosage: 1 G, UNK
     Route: 048
  3. TEMESTA                            /00273201/ [Concomitant]
     Active Substance: LORAZEPAM
     Dosage: 1 MG, UNK
     Route: 048
  4. ZYPREXA [Suspect]
     Active Substance: OLANZAPINE
     Indication: PSYCHOTIC DISORDER
     Dosage: 10 MG, QD
     Route: 048
     Dates: start: 20140427, end: 20140520
  5. DEPAKENE [Concomitant]
     Active Substance: VALPROIC ACID
     Dosage: 500 MG, BID
     Route: 048
     Dates: start: 201405
  6. VITAMINE B12 AGUETTANT [Concomitant]
     Dosage: 1 MG, QD
     Route: 048
  7. RISPERDAL [Suspect]
     Active Substance: RISPERIDONE
     Indication: PSYCHOTIC DISORDER
     Dosage: 2 MG, QD
     Route: 048
     Dates: start: 20140606, end: 20140607
  8. DEPAKENE [Concomitant]
     Active Substance: VALPROIC ACID
     Dosage: 1500 MG, QD

REACTIONS (5)
  - Persecutory delusion [Unknown]
  - Hallucination, auditory [Unknown]
  - Epilepsy [Recovered/Resolved]
  - Negativism [Unknown]
  - Delirium [Unknown]

NARRATIVE: CASE EVENT DATE: 20140509
